FAERS Safety Report 7618965-3 (Version None)
Quarter: 2011Q3

REPORT INFORMATION
  Report Type: 
  Country: None (occurrence: None)
  Receive Date: 20110718
  Receipt Date: 20110711
  Transmission Date: 20111222
  Serious: Yes (Hospitalization, Other)
  Sender: FDA-Public Use
  Company Number: DE-PFIZER INC-2011111015

PATIENT
  Age: 72 Year
  Sex: Female
  Weight: 63 kg

DRUGS (9)
  1. CLINDAMYCIN HYDROCHLORIDE [Concomitant]
     Indication: TOXOPLASMOSIS
     Dosage: 300 MG, 4X/DAY
     Route: 048
     Dates: start: 20110402
  2. PREDNISOLONE [Concomitant]
     Dosage: 40 MG, 1X/DAY
     Dates: start: 20110413
  3. SULFASALAZINE [Suspect]
     Indication: TOXOPLASMOSIS
     Dosage: 1000 MG, 3X/DAY
     Dates: start: 20110402, end: 20110408
  4. PREDNISOLONE [Concomitant]
     Indication: TOXOPLASMOSIS
     Dosage: 100 MG, 1X/DAY
     Route: 048
     Dates: start: 20110402, end: 20110404
  5. HYDROCHLOROTHIAZIDE [Concomitant]
     Indication: HYPERTENSION
     Dosage: 12.5 MG, 1X/DAY
     Route: 048
  6. APROVEL [Concomitant]
     Indication: HYPERTENSION
     Dosage: 300 MG, 1X/DAY
     Route: 048
  7. MOXONIDINE [Concomitant]
     Indication: HYPERTENSION
     Dosage: 0.3 MG, 1X/DAY
     Route: 048
  8. PANTOPRAZOLE [Concomitant]
     Indication: PROPHYLAXIS AGAINST GASTROINTESTINAL ULCER
     Dosage: 40 MG, 1X/DAY
     Route: 048
  9. PREDNISOLONE [Concomitant]
     Dosage: 50 MG, 1X/DAY
     Dates: start: 20110405, end: 20110412

REACTIONS (4)
  - NAUSEA [None]
  - APHTHOUS STOMATITIS [None]
  - DIARRHOEA [None]
  - HYPONATRAEMIA [None]
